FAERS Safety Report 5524459-1 (Version None)
Quarter: 2007Q4

REPORT INFORMATION
  Report Type: 
  Country: None (occurrence: None)
  Receive Date: 20071122
  Receipt Date: 20071112
  Transmission Date: 20080405
  Serious: Yes (Disabling)
  Sender: FDA-Public Use
  Company Number: PHHY2007BR00481

PATIENT
  Age: 50 Year
  Sex: Female

DRUGS (4)
  1. DIOVAN HCT [Suspect]
     Dosage: 160/12.5 MG/DAY
     Dates: start: 20070801
  2. DIOVAN HCT [Suspect]
     Dosage: 80/12.5 MG/DAY
     Route: 048
  3. DIOVAN HCT [Suspect]
     Dosage: 160/12.5 MG/DAY
     Route: 048
  4. DIOVAN [Suspect]
     Dosage: 160 MG, QD
     Route: 048

REACTIONS (21)
  - ASTHENIA [None]
  - BLOOD POTASSIUM DECREASED [None]
  - BLOOD PRESSURE FLUCTUATION [None]
  - BLOOD PRESSURE INADEQUATELY CONTROLLED [None]
  - BLOOD PRESSURE INCREASED [None]
  - DISABILITY [None]
  - DIZZINESS [None]
  - DIZZINESS POSTURAL [None]
  - DRUG INEFFECTIVE [None]
  - DYSPNOEA [None]
  - DYSSTASIA [None]
  - FEELING ABNORMAL [None]
  - HEAD DISCOMFORT [None]
  - JOINT CREPITATION [None]
  - LISTLESS [None]
  - NAUSEA [None]
  - PAIN [None]
  - POLLAKIURIA [None]
  - POLYURIA [None]
  - SOMNOLENCE [None]
  - VISUAL DISTURBANCE [None]
